FAERS Safety Report 8219428-7 (Version None)
Quarter: 2012Q1

REPORT INFORMATION
  Report Type: 
  Country: None (occurrence: None)
  Receive Date: 20120319
  Receipt Date: 20120314
  Transmission Date: 20120608
  Serious: Yes (Other)
  Sender: FDA-Public Use
  Company Number: IE-PFIZER INC-2011308687

PATIENT
  Age: 7 Year
  Sex: Female

DRUGS (1)
  1. GENOTROPIN [Suspect]
     Dosage: 0.5 MG, NIGHTLY

REACTIONS (1)
  - MASS [None]
